FAERS Safety Report 10922679 (Version 2)
Quarter: 2015Q2

REPORT INFORMATION
  Report Type: Spontaneous
  Country: US (occurrence: None)
  Receive Date: 20150313
  Receipt Date: 20150401
  Transmission Date: 20150821
  Serious: Yes (Other)
  Sender: FDA-Public Use
  Company Number: KAD201503-000472

PATIENT
  Age: 33 Year
  Sex: Male
  Weight: 76.2 kg

DRUGS (7)
  1. VIEKIRA PAK [Suspect]
     Active Substance: DASABUVIR\OMBITASVIR\PARITAPREVIR\RITONAVIR
     Indication: HEPATITIS C
     Route: 048
     Dates: start: 20150224
  2. PENICILLIN (BENZYLPENICILLIN) [Concomitant]
  3. PRILOSEC (OMEPRAZOLE) (OMEPRAZOLE) [Concomitant]
  4. KLONOPIN [Concomitant]
     Active Substance: CLONAZEPAM
  5. BYSTOLIC (NEBIVOLOL HYDROCHLORIDE) (NEBIVOLOL HYDROCHLORIDE) [Concomitant]
  6. ZYRTEC (CETIRIZINE HYDROCHLORIDE) (CETIRIZINE HYDROCHLORIDE) [Concomitant]
  7. RIBASPHERE [Suspect]
     Active Substance: RIBAVIRIN
     Indication: HEPATITIS C
     Dosage: 3 TABLETS IN AM AND PM (6 TABLETS DAILY)
     Route: 048
     Dates: start: 20150225, end: 20150304

REACTIONS (6)
  - Nausea [None]
  - Fatigue [None]
  - Ocular icterus [None]
  - Blood bilirubin increased [None]
  - Jaundice [None]
  - Blood alkaline phosphatase increased [None]

NARRATIVE: CASE EVENT DATE: 20150301
